FAERS Safety Report 8144269-9 (Version None)
Quarter: 2012Q1

REPORT INFORMATION
  Report Type: 
  Country: None (occurrence: None)
  Receive Date: 20120217
  Receipt Date: 20120207
  Transmission Date: 20120608
  Serious: Yes (Hospitalization)
  Sender: FDA-Public Use
  Company Number: NO-JNJFOC-20120205354

PATIENT
  Age: 45 Year
  Sex: Male

DRUGS (4)
  1. UNKNOWN MEDICATION [Suspect]
     Indication: PRODUCT USED FOR UNKNOWN INDICATION
     Route: 065
  2. XEPLION [Concomitant]
     Indication: PRODUCT USED FOR UNKNOWN INDICATION
     Route: 065
     Dates: start: 20120201
  3. RISPERDAL CONSTA [Suspect]
     Indication: SCHIZOPHRENIA
     Dosage: EVERY OTHER WEEK
     Route: 065
     Dates: end: 20120126
  4. XEPLION [Concomitant]
     Route: 065

REACTIONS (3)
  - TOXICITY TO VARIOUS AGENTS [None]
  - TREATMENT NONCOMPLIANCE [None]
  - PSYCHOTIC DISORDER [None]
